FAERS Safety Report 10520450 (Version 2)
Quarter: 2014Q4

REPORT INFORMATION
  Report Type: Report from Study
  Country: US (occurrence: US)
  Receive Date: 20141015
  Receipt Date: 20141015
  Transmission Date: 20150528
  Serious: Yes (Other)
  Sender: FDA-Public Use
  Company Number: US-ALEXION PHARMACEUTICALS INC-A200901526

PATIENT
  Sex: Male

DRUGS (1)
  1. SOLIRIS [Suspect]
     Active Substance: ECULIZUMAB
     Indication: PAROXYSMAL NOCTURNAL HAEMOGLOBINURIA

REACTIONS (12)
  - Reticulocyte count increased [Unknown]
  - Platelet count decreased [Unknown]
  - Haemochromatosis [Unknown]
  - Drug ineffective [Unknown]
  - Pyrexia [Unknown]
  - Viral infection [Unknown]
  - Pain in extremity [Unknown]
  - Abdominal pain [Unknown]
  - Haematocrit decreased [Unknown]
  - Haemoglobin decreased [Unknown]
  - Extravascular haemolysis [Unknown]
  - Blood count abnormal [Unknown]
